FAERS Safety Report 12752175 (Version 1)
Quarter: 2016Q3

REPORT INFORMATION
  Report Type: Spontaneous
  Country: US (occurrence: US)
  Receive Date: 20160915
  Receipt Date: 20160915
  Transmission Date: 20161109
  Serious: Yes (Hospitalization)
  Sender: FDA-Public Use
  Company Number: US-ASTELLAS-2016US027051

PATIENT
  Sex: Male

DRUGS (1)
  1. XTANDI [Suspect]
     Active Substance: ENZALUTAMIDE
     Indication: PROSTATE CANCER
     Route: 048
     Dates: start: 20160630

REACTIONS (11)
  - Gout [Unknown]
  - Constipation [Unknown]
  - Tongue discolouration [Unknown]
  - Decreased appetite [Unknown]
  - Blood urine present [Unknown]
  - Peripheral swelling [Recovering/Resolving]
  - Urinary tract infection [Unknown]
  - Erythema [Unknown]
  - Pain in extremity [Recovering/Resolving]
  - Feeling abnormal [Unknown]
  - Dysphagia [Unknown]
